FAERS Safety Report 9362894 (Version 1)
Quarter: 2013Q2

REPORT INFORMATION
  Report Type: Report from Study
  Country: US (occurrence: US)
  Receive Date: 20130624
  Receipt Date: 20130624
  Transmission Date: 20140414
  Serious: Yes (Hospitalization)
  Sender: FDA-Public Use
  Company Number: US-ROCHE-1239139

PATIENT
  Sex: Female
  Weight: 63.11 kg

DRUGS (5)
  1. ZELBORAF [Suspect]
     Indication: METASTATIC MALIGNANT MELANOMA
     Route: 048
     Dates: start: 20120701, end: 20120801
  2. ZELBORAF [Suspect]
     Route: 048
     Dates: start: 20120801
  3. ZELBORAF [Suspect]
     Dosage: 7 DAYS, FOLLOWED BY 7 DAYS OF REST
     Route: 048
  4. COUMADIN [Concomitant]
     Route: 048
     Dates: end: 20130501
  5. HEPARIN [Concomitant]
     Route: 065

REACTIONS (4)
  - Chest discomfort [Recovered/Resolved]
  - Cerebrovascular accident [Recovered/Resolved]
  - Hypertension [Unknown]
  - Rash generalised [Recovered/Resolved]
